FAERS Safety Report 8641373 (Version 2)
Quarter: 2013Q2

REPORT INFORMATION
  Report Type: Spontaneous
  Country: GB (occurrence: GB)
  Receive Date: 20120628
  Receipt Date: 20130627
  Transmission Date: 20140414
  Serious: Yes (Other)
  Sender: FDA-Public Use
  Company Number: GB-PFIZER INC-2012151774

PATIENT
  Age: 62 Year
  Sex: Female

DRUGS (2)
  1. AMLODIPINE BESILATE [Suspect]
     Indication: HYPERTENSION
     Dosage: 5 MG, 1X/DAY
     Route: 048
     Dates: start: 20120517, end: 20120606
  2. COLOFAC [Concomitant]
     Indication: IRRITABLE BOWEL SYNDROME
     Dosage: UNK
     Route: 048

REACTIONS (2)
  - Diarrhoea [Unknown]
  - Skin burning sensation [Unknown]
